FAERS Safety Report 21769488 (Version 1)
Quarter: 2022Q4

REPORT INFORMATION
  Report Type: Other
  Country: DO (occurrence: DO)
  Receive Date: 20221223
  Receipt Date: 20221223
  Transmission Date: 20230113
  Serious: Yes (Death, Other)
  Sender: FDA-Public Use
  Company Number: DO-TOLMAR, INC.-22DO037950

PATIENT
  Sex: Male

DRUGS (4)
  1. ELIGARD [Suspect]
     Active Substance: LEUPROLIDE ACETATE
     Indication: Prostate cancer
     Dosage: 45 MILLIGRAM, Q 6 MONTH
     Route: 058
     Dates: start: 202206
  2. ELIGARD [Suspect]
     Active Substance: LEUPROLIDE ACETATE
     Dosage: 45 MILLIGRAM, Q 6 MONTH
     Route: 058
  3. XTANDI [Suspect]
     Active Substance: ENZALUTAMIDE
     Indication: Prostate cancer
     Dosage: 160 MILLIGRAM, QD
     Route: 048
  4. CASODEX [Concomitant]
     Active Substance: BICALUTAMIDE
     Indication: Prostate cancer
     Dosage: 50 MILLIGRAM

REACTIONS (1)
  - Prostate cancer metastatic [Fatal]
